FAERS Safety Report 6194691-5 (Version None)
Quarter: 2009Q2

REPORT INFORMATION
  Report Type: 
  Country: None (occurrence: None)
  Receive Date: 20090519
  Receipt Date: 20090513
  Transmission Date: 20091009
  Serious: No
  Sender: FDA-Public Use
  Company Number: US-B.I. PHARMACEUTICALS,INC./RIDGEFIELD-2007-BP-20025BP

PATIENT
  Sex: Female

DRUGS (7)
  1. SPIRIVA [Suspect]
     Indication: CHRONIC OBSTRUCTIVE PULMONARY DISEASE
     Route: 055
     Dates: start: 20061001
  2. SPIRIVA [Suspect]
     Indication: EMPHYSEMA
  3. SPIRIVA [Suspect]
     Indication: BRONCHITIS CHRONIC
  4. SPIRIVA [Suspect]
     Indication: DYSPNOEA
  5. OXYGEN [Concomitant]
     Dates: start: 20041010
  6. ALBUTEROL SULFATE [Concomitant]
     Dates: start: 20041010
  7. ATROVENT HFA [Concomitant]
     Dates: start: 20070201

REACTIONS (1)
  - THERAPEUTIC RESPONSE DECREASED [None]
